FAERS Safety Report 19701467 (Version 1)
Quarter: 2021Q3

REPORT INFORMATION
  Report Type: Spontaneous
  Country: CA (occurrence: CA)
  Receive Date: 20210814
  Receipt Date: 20210814
  Transmission Date: 20211014
  Serious: Yes (Other)
  Sender: FDA-Public Use
  Company Number: CA-TEVA-2021-CA-1941051

PATIENT
  Age: 67 Year
  Sex: Female
  Weight: 70 kg

DRUGS (1)
  1. ACT LEVOFLOXACIN [Suspect]
     Active Substance: LEVOFLOXACIN
     Indication: WOUND INFECTION
     Dosage: 750 MILLIGRAM DAILY;
     Route: 048

REACTIONS (3)
  - Musculoskeletal stiffness [Unknown]
  - Muscular weakness [Unknown]
  - Paralysis [Unknown]
